FAERS Safety Report 17987085 (Version 1)
Quarter: 2020Q3

REPORT INFORMATION
  Report Type: Spontaneous
  Country: CN (occurrence: CN)
  Receive Date: 20200707
  Receipt Date: 20200707
  Transmission Date: 20201103
  Serious: Yes (Life-Threatening)
  Sender: FDA-Public Use
  Company Number: CN-ROCHE-2636540

PATIENT
  Sex: Female

DRUGS (3)
  1. HERCEPTIN [Suspect]
     Active Substance: TRASTUZUMAB
     Indication: BREAST CANCER METASTATIC
     Route: 041
     Dates: start: 20200628
  2. GEMCITABINE. [Concomitant]
     Active Substance: GEMCITABINE
     Indication: BREAST CANCER METASTATIC
     Route: 065
     Dates: start: 20200701
  3. PERJETA [Suspect]
     Active Substance: PERTUZUMAB
     Indication: BREAST CANCER METASTATIC
     Route: 042
     Dates: start: 20200628

REACTIONS (1)
  - Pneumomediastinum [Not Recovered/Not Resolved]

NARRATIVE: CASE EVENT DATE: 20200628
